FAERS Safety Report 6469940-6 (Version None)
Quarter: 2009Q4

REPORT INFORMATION
  Report Type: 
  Country: None (occurrence: None)
  Receive Date: 20091203
  Receipt Date: 20091125
  Transmission Date: 20100525
  Serious: Yes (Hospitalization)
  Sender: FDA-Public Use
  Company Number: US-JNJFOC-20071100944

PATIENT
  Sex: Female
  Weight: 55.79 kg

DRUGS (10)
  1. DURAGESIC-100 [Suspect]
     Route: 062
  2. DURAGESIC-100 [Suspect]
     Route: 062
  3. DURAGESIC-100 [Suspect]
     Dosage: 100+100+50
     Route: 062
  4. DURAGESIC-100 [Suspect]
     Indication: SCOLIOSIS
     Route: 062
  5. FLEXERIL [Suspect]
     Indication: MUSCLE SPASMS
     Route: 048
  6. VICODIN [Concomitant]
     Indication: BREAKTHROUGH PAIN
     Route: 048
  7. DEPAKOTE [Concomitant]
     Indication: EPILEPSY
     Route: 048
  8. ATENOLOL [Concomitant]
     Indication: HYPERTENSION
     Route: 048
  9. CLONAZEPAM [Concomitant]
     Dosage: 1 IN THE MORNING
     Route: 048
  10. CLONAZEPAM [Concomitant]
     Indication: MYOCLONUS
     Route: 048

REACTIONS (12)
  - BACK PAIN [None]
  - FEELING ABNORMAL [None]
  - HYPERHIDROSIS [None]
  - HYPOKINESIA [None]
  - INAPPROPRIATE SCHEDULE OF DRUG ADMINISTRATION [None]
  - LIMB DISCOMFORT [None]
  - MUSCLE STRAIN [None]
  - PAIN [None]
  - PRODUCT QUALITY ISSUE [None]
  - THERAPEUTIC RESPONSE INCREASED [None]
  - THYROID NEOPLASM [None]
  - WRONG TECHNIQUE IN DRUG USAGE PROCESS [None]
